FAERS Safety Report 9039988 (Version 2)
Quarter: 2013Q1

REPORT INFORMATION
  Report Type: Spontaneous
  Country: US (occurrence: US)
  Receive Date: 20130130
  Receipt Date: 20130320
  Transmission Date: 20140127
  Serious: Yes (Other)
  Sender: FDA-Public Use
  Company Number: PHEH2010US01085

PATIENT
  Sex: Male

DRUGS (3)
  1. GLEEVEC [Suspect]
     Indication: CHRONIC MYELOID LEUKAEMIA
     Dosage: 600 MG, DAILY
     Route: 048
     Dates: start: 20080225
  2. GLEEVEC [Suspect]
     Dosage: 600 MG, DAILY
     Route: 048
  3. ANDROGEL [Concomitant]

REACTIONS (9)
  - Splenomegaly [Unknown]
  - Neutropenia [Unknown]
  - Sleep disorder [Unknown]
  - Ligament sprain [Unknown]
  - Amnesia [Unknown]
  - Dyspnoea [Not Recovered/Not Resolved]
  - Somnolence [Unknown]
  - Muscle spasms [Not Recovered/Not Resolved]
  - Fatigue [Unknown]
